FAERS Safety Report 5358025-8 (Version None)
Quarter: 2007Q2

REPORT INFORMATION
  Report Type: 
  Country: None (occurrence: None)
  Receive Date: 20070530
  Receipt Date: 20070305
  Transmission Date: 20071010
  Serious: Yes (Hospitalization)
  Sender: FDA-Public Use
  Company Number: US200611004487

PATIENT
  Age: 30 Year
  Sex: Male
  Weight: 78 kg

DRUGS (3)
  1. ZYPREXA [Suspect]
     Dates: start: 20020718, end: 20030512
  2. FLUOXETINE [Concomitant]
  3. SEROQUEL [Concomitant]

REACTIONS (7)
  - AMNESIA [None]
  - BLOOD GLUCOSE ABNORMAL [None]
  - DEPRESSION [None]
  - DIABETES MELLITUS [None]
  - DIABETES MELLITUS NON-INSULIN-DEPENDENT [None]
  - DIABETIC KETOACIDOSIS [None]
  - HYPERTENSION [None]
